FAERS Safety Report 18468534 (Version 3)
Quarter: 2021Q1

REPORT INFORMATION
  Report Type: Report from Study
  Country: US (occurrence: US)
  Receive Date: 20201105
  Receipt Date: 20210225
  Transmission Date: 20210419
  Serious: No
  Sender: FDA-Public Use
  Company Number: NVSC2020US296983

PATIENT
  Sex: Male

DRUGS (1)
  1. TABRECTA [Suspect]
     Active Substance: CAPMATINIB
     Indication: NON-SMALL CELL LUNG CANCER
     Dosage: UNK
     Route: 065

REACTIONS (12)
  - Peripheral swelling [Unknown]
  - Cough [Unknown]
  - Diarrhoea [Unknown]
  - Blood albumin decreased [Unknown]
  - Decreased appetite [Unknown]
  - Joint swelling [Unknown]
  - Anaemia [Unknown]
  - Blood iron decreased [Unknown]
  - Product dose omission issue [Unknown]
  - Nausea [Unknown]
  - Vomiting [Unknown]
  - Pruritus [Unknown]
